FAERS Safety Report 8271483-4 (Version None)
Quarter: 2012Q2

REPORT INFORMATION
  Report Type: 
  Country: None (occurrence: None)
  Receive Date: 20120410
  Receipt Date: 20120405
  Transmission Date: 20120825
  Serious: Yes (Hospitalization, Other)
  Sender: FDA-Public Use
  Company Number: US-TEVA-326414USA

PATIENT
  Sex: Female

DRUGS (7)
  1. ALENDRONATE SODIUM [Concomitant]
  2. LEVOTHYROXINE SODIUM [Concomitant]
  3. NAPROXEN [Concomitant]
  4. PRAVASTATIN [Concomitant]
  5. COPAXONE [Suspect]
     Indication: MULTIPLE SCLEROSIS
     Dosage: 20 MILLIGRAM;
     Route: 058
     Dates: start: 20090814
  6. MULTI-VITAMIN [Concomitant]
  7. ESOMEPRAZOLE MAGNESIUM [Concomitant]
     Route: 048

REACTIONS (1)
  - ENDOMETRIAL CANCER STAGE III [None]
